FAERS Safety Report 19430189 (Version 2)
Quarter: 2021Q2

REPORT INFORMATION
  Report Type: Spontaneous
  Country: CN (occurrence: CN)
  Receive Date: 20210617
  Receipt Date: 20210621
  Transmission Date: 20210717
  Serious: Yes (Hospitalization, Other)
  Sender: FDA-Public Use
  Company Number: CN-009507513-2106CHN003729

PATIENT
  Age: 50 Year
  Sex: Male
  Weight: 63 kg

DRUGS (16)
  1. KEYTRUDA [Suspect]
     Active Substance: PEMBROLIZUMAB
     Indication: NEOPLASM MALIGNANT
     Dosage: 200 MG, DAY (D) 1
     Route: 041
     Dates: start: 20200319, end: 20200319
  2. KEYTRUDA [Suspect]
     Active Substance: PEMBROLIZUMAB
     Dosage: 200 MG, DAY (D) 1
     Route: 041
     Dates: start: 20200409, end: 20200409
  3. GEMZAR [Suspect]
     Active Substance: GEMCITABINE HYDROCHLORIDE
     Dosage: 1.4 G, EVERY 21 DAYS, DAY (D) 1, 8
     Route: 041
     Dates: start: 20201030
  4. CISPLATIN. [Suspect]
     Active Substance: CISPLATIN
     Indication: NEOPLASM MALIGNANT
     Dosage: 100 MG, EVERY 21 DAYS, DAY (D) 1, 5 CYCLES
     Route: 041
     Dates: start: 20201225, end: 20210405
  5. CARBOPLATIN. [Concomitant]
     Active Substance: CARBOPLATIN
     Dosage: 300 MG, D1/Q3W, THE SECOND CYCLE
     Route: 041
     Dates: start: 20200409, end: 20200409
  6. KEYTRUDA [Suspect]
     Active Substance: PEMBROLIZUMAB
     Dosage: 200MG DAY (D) 1, 6 CYCLES
     Route: 041
     Dates: start: 20200430, end: 20200824
  7. KEYTRUDA [Suspect]
     Active Substance: PEMBROLIZUMAB
     Dosage: 200 MG, DAY (D) 1
     Route: 041
     Dates: start: 20201121, end: 20201121
  8. PACLITAXEL FOR INJECTION (ALBUMIN BOUND) [Concomitant]
     Active Substance: PACLITAXEL
     Dosage: 300 MG, D1, THE SECOND CYCLE
     Route: 041
     Dates: start: 20200409, end: 20200409
  9. KEYTRUDA [Suspect]
     Active Substance: PEMBROLIZUMAB
     Dosage: 200 MG DAY (D) 1
     Route: 041
     Dates: start: 20200927, end: 20200927
  10. CARBOPLATIN. [Concomitant]
     Active Substance: CARBOPLATIN
     Dosage: 450 MG, D1/Q3W
     Route: 041
     Dates: start: 20200319, end: 20200319
  11. GEMZAR [Suspect]
     Active Substance: GEMCITABINE HYDROCHLORIDE
     Dosage: 1.4 G, EVERY 21 DAYS, DAY (D) 1, 8
     Route: 041
     Dates: start: 20201121
  12. KEYTRUDA [Suspect]
     Active Substance: PEMBROLIZUMAB
     Dosage: 200 MG, EVERY 21 DAYS, D1/Q3W
     Route: 041
     Dates: start: 20201225, end: 20210405
  13. GEMZAR [Suspect]
     Active Substance: GEMCITABINE HYDROCHLORIDE
     Indication: NEOPLASM MALIGNANT
     Dosage: 1.4 G, EVERY 21 DAYS, DAY (D) 1, 8
     Route: 041
     Dates: start: 20200927
  14. KEYTRUDA [Suspect]
     Active Substance: PEMBROLIZUMAB
     Dosage: 200 MG, DAY (D) 1
     Route: 041
     Dates: start: 20201030, end: 20201030
  15. GEMZAR [Suspect]
     Active Substance: GEMCITABINE HYDROCHLORIDE
     Dosage: 1.4 G, EVERY 21 DAYS, DAY (D) 1, 8, 5 CYCLES
     Route: 041
     Dates: start: 20201225, end: 20210405
  16. PACLITAXEL FOR INJECTION (ALBUMIN BOUND) [Concomitant]
     Active Substance: PACLITAXEL
     Dosage: 395 MG, D1
     Route: 041
     Dates: start: 20200319, end: 20200319

REACTIONS (6)
  - Renal failure [Unknown]
  - Malignant neoplasm progression [Unknown]
  - Therapy partial responder [Unknown]
  - Interstitial lung disease [Recovering/Resolving]
  - Inappropriate schedule of product administration [Unknown]
  - Neurotoxicity [Unknown]

NARRATIVE: CASE EVENT DATE: 2020
